FAERS Safety Report 25777909 (Version 2)
Quarter: 2025Q4

REPORT INFORMATION
  Report Type: Spontaneous
  Country: US (occurrence: US)
  Receive Date: 20250909
  Receipt Date: 20251020
  Transmission Date: 20260117
  Serious: Yes (Death)
  Sender: JOHNSON AND JOHNSON
  Company Number: US-JNJFOC-20250907493

PATIENT
  Age: 71 Year
  Sex: Female
  Weight: 85.73 kg

DRUGS (2)
  1. SIMPONI ARIA [Suspect]
     Active Substance: GOLIMUMAB
     Indication: Rheumatoid arthritis
     Dosage: 2MG/KG
     Route: 041
     Dates: start: 20250131, end: 20250728
  2. METHOTREXATE [Concomitant]
     Active Substance: METHOTREXATE
     Indication: Rheumatoid arthritis
     Route: 048
     Dates: start: 20250501, end: 20250810

REACTIONS (5)
  - Death [Fatal]
  - Muscle tightness [Unknown]
  - Neck pain [Unknown]
  - Back pain [Unknown]
  - Joint warmth [Unknown]
